FAERS Safety Report 8776104 (Version 1)
Quarter: 2012Q4

REPORT INFORMATION
  Report Type: 
  Country: JP (occurrence: JP)
  Receive Date: 20120910
  Receipt Date: 20120910
  Transmission Date: 20130627
  Serious: Yes (Other)
  Sender: FDA-Public Use
  Company Number: JP-ELI_LILLY_AND_COMPANY-JP201105003197

PATIENT
  Age: 65 Year
  Sex: Female

DRUGS (1)
  1. FORTEO [Suspect]
     Dosage: UNK
     Dates: start: 20110425, end: 20120822

REACTIONS (5)
  - Scapula fracture [Unknown]
  - Injection site bruising [Unknown]
  - Alanine aminotransferase increased [Recovering/Resolving]
  - Hypersensitivity [Unknown]
  - Back pain [Unknown]
